FAERS Safety Report 21935142 (Version 5)
Quarter: 2023Q2

REPORT INFORMATION
  Report Type: Report from Study
  Country: CO (occurrence: CO)
  Receive Date: 20230201
  Receipt Date: 20230513
  Transmission Date: 20230722
  Serious: Yes (Hospitalization, Other)
  Sender: FDA-Public Use
  Company Number: CO-002147023-NVSC2023CO020766

PATIENT
  Sex: Female

DRUGS (1)
  1. ELTROMBOPAG OLAMINE [Suspect]
     Active Substance: ELTROMBOPAG OLAMINE
     Indication: Immune thrombocytopenia
     Dosage: UNK, QD
     Route: 048

REACTIONS (6)
  - Platelet count decreased [Unknown]
  - Asphyxia [Unknown]
  - Insomnia [Unknown]
  - Headache [Unknown]
  - Drug ineffective [Unknown]
  - Product availability issue [Unknown]
